FAERS Safety Report 19290005 (Version 1)
Quarter: 2021Q2

REPORT INFORMATION
  Report Type: Report from Study
  Country: CN (occurrence: CN)
  Receive Date: 20210522
  Receipt Date: 20210522
  Transmission Date: 20210717
  Serious: Yes (Hospitalization)
  Sender: FDA-Public Use
  Company Number: NVSC2021CN109111

PATIENT
  Age: 60 Year
  Sex: Female
  Weight: 59 kg

DRUGS (16)
  1. CAPECITABINE. [Suspect]
     Active Substance: CAPECITABINE
     Dosage: 750 MG, BID (600 MG + 150 MG)
     Route: 048
     Dates: start: 20210226, end: 20210311
  2. CAPECITABINE. [Suspect]
     Active Substance: CAPECITABINE
     Dosage: 1500 MG, BID (1000 MG + 500 MG)
     Route: 048
     Dates: start: 20210421, end: 20210504
  3. CAPECITABINE. [Suspect]
     Active Substance: CAPECITABINE
     Indication: BREAST CANCER METASTATIC
     Dosage: 750 MG, BID (600 MG + 150 MG)
     Route: 048
     Dates: start: 20201205, end: 20201218
  4. CAPECITABINE. [Suspect]
     Active Substance: CAPECITABINE
     Dosage: 1500 MG, BID (1000 MG + 500 MG)
     Route: 048
     Dates: start: 20201205, end: 20201218
  5. CAPECITABINE. [Suspect]
     Active Substance: CAPECITABINE
     Dosage: 750 MG, BID (600 MG + 150 MG)
     Route: 048
     Dates: start: 20201226, end: 20210108
  6. CAPECITABINE. [Suspect]
     Active Substance: CAPECITABINE
     Dosage: 750 MG, BID (600 MG + 150 MG)
     Route: 048
     Dates: start: 20210123, end: 20210205
  7. CAPECITABINE. [Suspect]
     Active Substance: CAPECITABINE
     Dosage: 1500 MG, BID (1000 MG + 500 MG)
     Route: 048
     Dates: start: 20210320, end: 20210402
  8. CAPECITABINE. [Suspect]
     Active Substance: CAPECITABINE
     Dosage: 750 MG, BID (600 MG + 150 MG)
     Route: 048
     Dates: start: 20210421, end: 20210504
  9. NIMODIPINE. [Concomitant]
     Active Substance: NIMODIPINE
     Indication: HYPOTENSION
     Dosage: 1 DF, QD
     Route: 065
     Dates: start: 20201205
  10. TYKERB [Suspect]
     Active Substance: LAPATINIB DITOSYLATE
     Dosage: 1500 MG, QD  (1250 MG + 250 MG)
     Route: 048
     Dates: start: 20210226, end: 20210408
  11. TYKERB [Suspect]
     Active Substance: LAPATINIB DITOSYLATE
     Indication: BREAST CANCER METASTATIC
     Dosage: 1500 MG, QD (1250 MG + 250 MG, FORMULATION: TABLET)
     Route: 048
     Dates: start: 20201205, end: 20210217
  12. CAPECITABINE. [Suspect]
     Active Substance: CAPECITABINE
     Dosage: 750 MG, BID (600 MG + 150 MG)
     Route: 048
     Dates: start: 20210320, end: 20210402
  13. CAPECITABINE. [Suspect]
     Active Substance: CAPECITABINE
     Dosage: 1500 MG, BID (1000 MG + 500 MG)
     Route: 048
     Dates: start: 20201226, end: 20210108
  14. CAPECITABINE. [Suspect]
     Active Substance: CAPECITABINE
     Dosage: 1500 MG, BID (1000 MG + 500 MG)
     Route: 048
     Dates: start: 20210226, end: 20210311
  15. TYKERB [Suspect]
     Active Substance: LAPATINIB DITOSYLATE
     Dosage: 1250 MG, QD (1000 MG + 250 MG)
     Route: 048
     Dates: start: 20210421, end: 20210509
  16. CAPECITABINE. [Suspect]
     Active Substance: CAPECITABINE
     Dosage: 1500 MG, BID (1000 MG + 500 MG)
     Route: 048
     Dates: start: 20210123, end: 20210205

REACTIONS (3)
  - Anaemia [Recovered/Resolved]
  - Neutrophil count decreased [Unknown]
  - White blood cell count decreased [Unknown]

NARRATIVE: CASE EVENT DATE: 20210511
